FAERS Safety Report 24148924 (Version 4)
Quarter: 2024Q4

REPORT INFORMATION
  Report Type: Spontaneous
  Country: CO (occurrence: CO)
  Receive Date: 20240729
  Receipt Date: 20241004
  Transmission Date: 20250114
  Serious: Yes (Hospitalization, Other)
  Sender: LUNDBECK
  Company Number: CO-SA-SAC20240725001629

PATIENT

DRUGS (13)
  1. CLOBAZAM [Suspect]
     Active Substance: CLOBAZAM
     Indication: Petit mal epilepsy
     Dosage: 4 DF, QD (1 TABLET IN THE MORNING, 1 TABLET IN THE AFTERNOON, AND 2 TABLETS AT NIGHT)
     Route: 048
     Dates: start: 2015
  2. CLOBAZAM [Suspect]
     Active Substance: CLOBAZAM
     Indication: Generalised tonic-clonic seizure
     Dosage: 2 MG, QD
     Route: 048
     Dates: start: 201806
  3. CLOBAZAM [Suspect]
     Active Substance: CLOBAZAM
     Indication: Epilepsy
  4. LACOSAMIDE [Concomitant]
     Active Substance: LACOSAMIDE
     Indication: Petit mal epilepsy
     Dosage: UNK UNK, TID (1 TABLET IN THE MORNING, 1 TABLET IN THE AFTERNOON AND 2 TABLETS AT NIGHT)
  5. LACOSAMIDE [Concomitant]
     Active Substance: LACOSAMIDE
     Indication: Generalised tonic-clonic seizure
     Dosage: 4 DF, QD (1 TABLET IN THE MORNING, 1 TABLET IN THE AFTERNOON AND 2 TABLETS IN THE EVENING)
  6. LACOSAMIDE [Concomitant]
     Active Substance: LACOSAMIDE
     Indication: Epilepsy
  7. ALBUTEROL [Concomitant]
     Active Substance: ALBUTEROL
     Indication: Asthma
     Dosage: UNK (ONLY IN CASE OF CRISIS)
     Route: 055
  8. ALBUTEROL [Concomitant]
     Active Substance: ALBUTEROL
     Dosage: 2 UG/MG  DOSE EVERY
  9. FLUTICASONE [Concomitant]
     Active Substance: FLUTICASONE
     Indication: Asthma
     Dosage: UNK (ONLY IN CASE OF CRISIS)
     Route: 055
  10. FLUTICASONE [Concomitant]
     Active Substance: FLUTICASONE
     Dosage: 2 UG/MG  DOSE EVERY
  11. BECLOMETHASONE [Concomitant]
     Active Substance: BECLOMETHASONE
     Indication: Asthma
     Dosage: UNK UNK, QD (2 PUFF ONCE A DAY)
  12. BECLOMETHASONE [Concomitant]
     Active Substance: BECLOMETHASONE
     Dosage: UNK, Q8H (2 PUFF  IN CASE OF FLU EVERY 8H)
  13. BRIVARACETAM [Concomitant]
     Active Substance: BRIVARACETAM
     Indication: Product used for unknown indication
     Dosage: UNK

REACTIONS (14)
  - Seizure [Recovering/Resolving]
  - Status epilepticus [Recovering/Resolving]
  - Generalised tonic-clonic seizure [Not Recovered/Not Resolved]
  - Condition aggravated [Not Recovered/Not Resolved]
  - Petit mal epilepsy [Not Recovered/Not Resolved]
  - Condition aggravated [Not Recovered/Not Resolved]
  - Partial seizures [Unknown]
  - Insomnia [Not Recovered/Not Resolved]
  - Disorientation [Recovering/Resolving]
  - Anxiety [Not Recovered/Not Resolved]
  - Intentional product misuse [Unknown]
  - Tremor [Not Recovered/Not Resolved]
  - Drug effect less than expected [Unknown]
  - Headache [Not Recovered/Not Resolved]

NARRATIVE: CASE EVENT DATE: 20180101
